FAERS Safety Report 18493700 (Version 1)
Quarter: 2020Q4

REPORT INFORMATION
  Report Type: Spontaneous
  Country: IT (occurrence: IT)
  Receive Date: 20201112
  Receipt Date: 20201112
  Transmission Date: 20210114
  Serious: Yes (Other)
  Sender: FDA-Public Use
  Company Number: IT-SUN PHARMACEUTICAL INDUSTRIES LTD-2020RR-267494

PATIENT
  Age: 41 Year
  Sex: Female

DRUGS (3)
  1. CARBOPLATIN. [Suspect]
     Active Substance: CARBOPLATIN
     Indication: MESOTHELIOMA MALIGNANT
     Dosage: 2 COURSES
     Route: 065
  2. PEMETREXED. [Suspect]
     Active Substance: PEMETREXED
     Indication: MESOTHELIOMA MALIGNANT
     Dosage: 2 COURSES
     Route: 065
  3. GEMCITABINE. [Suspect]
     Active Substance: GEMCITABINE
     Indication: MESOTHELIOMA MALIGNANT
     Dosage: UNK
     Route: 065

REACTIONS (2)
  - Neoplasm progression [Unknown]
  - Drug ineffective [Unknown]
